FAERS Safety Report 9231502 (Version 4)
Quarter: 2013Q3

REPORT INFORMATION
  Report Type: Spontaneous
  Country: BE (occurrence: BE)
  Receive Date: 20130415
  Receipt Date: 20130806
  Transmission Date: 20140515
  Serious: Yes (Hospitalization)
  Sender: FDA-Public Use
  Company Number: BE-GLAXOSMITHKLINE-B0849881B

PATIENT
  Age: 0 Day
  Sex: Male

DRUGS (5)
  1. WELLBUTRIN [Suspect]
     Indication: DEPRESSION
     Dosage: 300MG PER DAY
     Route: 064
     Dates: start: 201111, end: 20130125
  2. TRANXENE [Suspect]
     Indication: INSOMNIA
     Dosage: 5MG PER DAY
     Route: 064
     Dates: end: 20120320
  3. CIRCADIN [Suspect]
     Indication: INSOMNIA
     Dosage: 2MG PER DAY
     Route: 064
     Dates: end: 20120416
  4. XANAX [Suspect]
     Indication: FEAR
     Dosage: .25MG PER DAY
     Route: 064
     Dates: end: 20120806
  5. OMNIBIONTA [Suspect]
     Dosage: 1TAB PER DAY
     Route: 064

REACTIONS (7)
  - Foetal growth restriction [Unknown]
  - Pneumothorax [Unknown]
  - Neonatal respiratory distress syndrome [Recovered/Resolved]
  - Hyperbilirubinaemia [Recovered/Resolved]
  - Upper respiratory tract infection [Recovered/Resolved]
  - Foetal exposure during pregnancy [Unknown]
  - Hyponatraemia [Recovered/Resolved]
